FAERS Safety Report 17638331 (Version 2)
Quarter: 2020Q2

REPORT INFORMATION
  Report Type: Spontaneous
  Country: FR (occurrence: FR)
  Receive Date: 20200407
  Receipt Date: 20200408
  Transmission Date: 20200713
  Serious: Yes (Hospitalization)
  Sender: FDA-Public Use
  Company Number: FR-TEVA-2020-FR-1219319

PATIENT
  Sex: Female
  Weight: 55 kg

DRUGS (5)
  1. TEVAGRASTIM 30 MUI/0,5 ML, SOLUTION INJECTABLE OU POUR PERFUSION [Suspect]
     Active Substance: FILGRASTIM
     Indication: PRODUCT USED FOR UNKNOWN INDICATION
     Dosage: 1 DOSAGE FORMS
     Route: 058
     Dates: start: 20200125, end: 20200129
  2. MEDROL 100 MG, COMPRIME [Concomitant]
     Indication: PREMEDICATION
     Dosage: 1 DOSAGE FORMS
     Route: 048
     Dates: start: 20200122, end: 20200124
  3. EMEND 80 MG, GELULE [Concomitant]
     Active Substance: APREPITANT
     Indication: NAUSEA
     Dosage: 1 DOSAGE FORMS
     Route: 048
     Dates: start: 20200124, end: 20200125
  4. DOCETAXEL ACCORD 160 MG/8 ML, SOLUTION A DILUER POUR PERFUSION [Concomitant]
     Active Substance: DOCETAXEL
     Indication: BREAST CANCER
     Dosage: 1 DOSAGE FORMS
     Route: 041
     Dates: start: 20200123, end: 20200123
  5. EMEND [Concomitant]
     Active Substance: APREPITANT
     Indication: NAUSEA
     Dosage: 1 DOSAGE FORMS
     Route: 048
     Dates: start: 20200123, end: 20200123

REACTIONS (4)
  - Arthralgia [Recovered/Resolved]
  - Spinal pain [Recovered/Resolved]
  - Constipation [Recovered/Resolved]
  - Erythema [Recovered/Resolved]

NARRATIVE: CASE EVENT DATE: 20200126
